FAERS Safety Report 19044755 (Version 1)
Quarter: 2021Q1

REPORT INFORMATION
  Report Type: Spontaneous
  Country: US (occurrence: US)
  Receive Date: 20210323
  Receipt Date: 20210323
  Transmission Date: 20210420
  Serious: Yes (Hospitalization)
  Sender: FDA-Public Use
  Company Number: None

PATIENT
  Sex: Female

DRUGS (19)
  1. GLIPIZIDE. [Concomitant]
     Active Substance: GLIPIZIDE
  2. VITAMIN B12 [Concomitant]
     Active Substance: CYANOCOBALAMIN
  3. SPRYCEL [Suspect]
     Active Substance: DASATINIB
     Indication: CHRONIC MYELOID LEUKAEMIA
     Route: 048
     Dates: start: 20210225
  4. BENAZEPRIL [Concomitant]
     Active Substance: BENAZEPRIL HYDROCHLORIDE
  5. BENZTROPINE. [Concomitant]
     Active Substance: BENZTROPINE
  6. HYDROCORTISONE. [Concomitant]
     Active Substance: HYDROCORTISONE
  7. PRENATAL [Concomitant]
     Active Substance: VITAMINS
  8. METFORMIN [Concomitant]
     Active Substance: METFORMIN HYDROCHLORIDE
  9. NYSTOP [Concomitant]
     Active Substance: NYSTATIN
  10. AMLODIPINE [Concomitant]
     Active Substance: AMLODIPINE BESYLATE
  11. CALCIUM CITRATE + D [Concomitant]
     Active Substance: CALCIUM CITRATE\CHOLECALCIFEROL
  12. FISH OIL [Concomitant]
     Active Substance: FISH OIL
  13. KETOCONAZOLE. [Concomitant]
     Active Substance: KETOCONAZOLE
  14. LEVOTHYROXIN [Concomitant]
     Active Substance: LEVOTHYROXINE
  15. ATORVASTATIN [Concomitant]
     Active Substance: ATORVASTATIN
  16. FEROSUL [Concomitant]
     Active Substance: FERROUS SULFATE
  17. MEGESTROL [Concomitant]
     Active Substance: MEGESTROL
  18. MAGNESIUM [Concomitant]
     Active Substance: MAGNESIUM
  19. NYSTATIN. [Concomitant]
     Active Substance: NYSTATIN

REACTIONS (1)
  - White blood cell count decreased [None]
